FAERS Safety Report 4806418-7 (Version None)
Quarter: 2005Q4

REPORT INFORMATION
  Report Type: 
  Country: None (occurrence: None)
  Receive Date: 20051021
  Receipt Date: 20051011
  Transmission Date: 20060501
  Serious: Yes (Other)
  Sender: FDA-Public Use
  Company Number: PHBS2005IT15089

PATIENT
  Age: 59 Year
  Sex: Female

DRUGS (5)
  1. ZOLEDRONATE [Suspect]
     Indication: METASTASES TO BONE
     Dosage: 4 MG, QMO
     Route: 042
     Dates: start: 20030101
  2. EPIRUBICIN [Concomitant]
     Route: 065
     Dates: start: 20020401, end: 20040301
  3. DOCETAXEL [Concomitant]
     Route: 065
     Dates: start: 20020401, end: 20040301
  4. VINORELBINE [Concomitant]
     Route: 065
     Dates: start: 20040401
  5. FLUOROURACIL [Concomitant]
     Route: 065
     Dates: start: 20040401

REACTIONS (8)
  - BONE DEBRIDEMENT [None]
  - BONE DISORDER [None]
  - LOCAL ANAESTHESIA [None]
  - OSTEITIS [None]
  - OSTEONECROSIS [None]
  - PAIN [None]
  - SURGERY [None]
  - ULCER [None]
